FAERS Safety Report 12535548 (Version 1)
Quarter: 2016Q3

REPORT INFORMATION
  Report Type: Spontaneous
  Country: US (occurrence: None)
  Receive Date: 20160706
  Receipt Date: 20160706
  Transmission Date: 20161109
  Serious: Yes (Other)
  Sender: FDA-Public Use
  Company Number: None

PATIENT
  Age: 2 Month
  Sex: Female
  Weight: 45.36 kg

DRUGS (8)
  1. NIVOLUMAB [Suspect]
     Active Substance: NIVOLUMAB
     Indication: LUNG NEOPLASM MALIGNANT
     Dosage: INTO A VEIN
     Route: 042
     Dates: start: 20160309, end: 20160518
  2. NORTRIPTYLINE [Concomitant]
     Active Substance: NORTRIPTYLINE
  3. DEXAMETHASONE. [Concomitant]
     Active Substance: DEXAMETHASONE
  4. FOLIC ACID. [Concomitant]
     Active Substance: FOLIC ACID
  5. LEVETIRACETAM. [Concomitant]
     Active Substance: LEVETIRACETAM
  6. IRON [Concomitant]
     Active Substance: IRON
  7. OXYCONTIN [Concomitant]
     Active Substance: OXYCODONE HYDROCHLORIDE
  8. ZETIA [Concomitant]
     Active Substance: EZETIMIBE

REACTIONS (1)
  - Tonic convulsion [None]

NARRATIVE: CASE EVENT DATE: 20160415
